FAERS Safety Report 9555201 (Version 1)
Quarter: 2013Q3

REPORT INFORMATION
  Report Type: Spontaneous
  Country: US (occurrence: None)
  Receive Date: 20130913
  Receipt Date: 20130913
  Transmission Date: 20140515
  Serious: Yes (Other)
  Sender: FDA-Public Use
  Company Number: 1609782

PATIENT
  Sex: 0

DRUGS (1)
  1. LEVOPHED [Suspect]
     Indication: PRODUCT USED FOR UNKNOWN INDICATION
     Dosage: NOT REPORTED, NOT REPORTED, UNKNOWN,

REACTIONS (2)
  - Gangrene [None]
  - Necrosis [None]
